FAERS Safety Report 7406419-9 (Version None)
Quarter: 2011Q2

REPORT INFORMATION
  Report Type: 
  Country: None (occurrence: None)
  Receive Date: 20110411
  Receipt Date: 20110404
  Transmission Date: 20111010
  Serious: Yes (Death, Hospitalization)
  Sender: FDA-Public Use
  Company Number: PHHY2011US26883

PATIENT
  Sex: Male
  Weight: 76 kg

DRUGS (12)
  1. EXJADE [Suspect]
     Dosage: 125 MG, QD
     Route: 048
  2. BACLOFEN [Concomitant]
     Dosage: 10 MG, TID
     Route: 048
  3. WARFARIN SODIUM [Concomitant]
     Dosage: 3 MG, UNK
     Route: 048
  4. CELEXA [Concomitant]
     Dosage: 20 MG, PER DAY
  5. LASIX [Concomitant]
     Indication: OEDEMA
     Dosage: 40 MG, UNK
     Route: 048
  6. LORTAB [Concomitant]
  7. NEXIUM [Concomitant]
     Dosage: 40 MG, DAILY
     Route: 048
  8. EXJADE [Suspect]
     Dosage: 500 MG, TID FOR 30 DAYS
     Route: 048
  9. PACERONE [Concomitant]
     Dosage: 200 MG, ONCE DAILY
     Route: 048
  10. METFORMIN HCL [Concomitant]
     Dosage: 500 MG,
     Route: 048
  11. METOPROLOL TARTRATE [Concomitant]
     Dosage: 25 MG, BID
     Route: 048
  12. REMERON [Concomitant]
     Dosage: 15 MG, ONE TABLET AT BED TIME
     Route: 048

REACTIONS (1)
  - DEATH [None]
